FAERS Safety Report 4455503-0 (Version None)
Quarter: 2004Q3

REPORT INFORMATION
  Report Type: 
  Country: None (occurrence: None)
  Receive Date: 20040922
  Receipt Date: 20040910
  Transmission Date: 20050211
  Serious: Yes (Hospitalization)
  Sender: FDA-Public Use
  Company Number: SG-BRISTOL-MYERS SQUIBB COMPANY-12697827

PATIENT

DRUGS (1)
  1. REYATAZ [Suspect]

REACTIONS (1)
  - DYSPNOEA [None]
